FAERS Safety Report 22028840 (Version 1)
Quarter: 2023Q1

REPORT INFORMATION
  Report Type: Report from Study
  Country: US (occurrence: US)
  Receive Date: 20230223
  Receipt Date: 20230223
  Transmission Date: 20230418
  Serious: Yes (Other)
  Sender: FDA-Public Use
  Company Number: US-OTSUKA-2023_004708

PATIENT
  Sex: Female
  Weight: 100.7 kg

DRUGS (3)
  1. CEDAZURIDINE\DECITABINE [Suspect]
     Active Substance: CEDAZURIDINE\DECITABINE
     Indication: Product used for unknown indication
     Dosage: UNK,(35 MG OF DECITABINE AND 100 MG OF CEDAZURIDINE)
     Route: 065
  2. TIBSOVO [Suspect]
     Active Substance: IVOSIDENIB
     Indication: Myelodysplastic syndrome
     Dosage: UNK
     Route: 065
     Dates: start: 20200421
  3. TIBSOVO [Suspect]
     Active Substance: IVOSIDENIB
     Dosage: 250 MG, QD
     Route: 065

REACTIONS (4)
  - Full blood count abnormal [Unknown]
  - Pneumonia [Recovering/Resolving]
  - Arthralgia [Not Recovered/Not Resolved]
  - Headache [Unknown]
